FAERS Safety Report 15882054 (Version 5)
Quarter: 2019Q2

REPORT INFORMATION
  Report Type: Report from Study
  Country: US (occurrence: US)
  Receive Date: 20190128
  Receipt Date: 20190604
  Transmission Date: 20190711
  Serious: Yes (Hospitalization, Other)
  Sender: FDA-Public Use
  Company Number: US-ACTELION-A-NJ2018-182847

PATIENT
  Age: 53 Year
  Sex: Female
  Weight: 101.59 kg

DRUGS (4)
  1. ADEMPAS [Concomitant]
     Active Substance: RIOCIGUAT
     Dosage: 2.5 MG, TID
  2. XARELTO [Concomitant]
     Active Substance: RIVAROXABAN
     Dosage: 15 MG, QD
  3. OPSUMIT [Suspect]
     Active Substance: MACITENTAN
     Indication: PULMONARY HYPERTENSION
     Dosage: 10 MG, UNK
     Route: 048
     Dates: start: 20181116
  4. BREO ELLIPTA [Concomitant]
     Active Substance: FLUTICASONE FUROATE\VILANTEROL TRIFENATATE
     Dosage: 200 MCG/25/MCG, 1 PUFF DAILY
     Route: 055

REACTIONS (10)
  - Pulmonary embolism [Unknown]
  - Sinus disorder [Recovering/Resolving]
  - Anaemia [Unknown]
  - Haemoglobin decreased [Unknown]
  - Dyspepsia [Unknown]
  - Nasal congestion [Unknown]
  - Hospitalisation [Unknown]
  - Angioplasty [Unknown]
  - Nasopharyngitis [Recovering/Resolving]
  - Vaginal haemorrhage [Unknown]

NARRATIVE: CASE EVENT DATE: 201811
